FAERS Safety Report 4502682-2 (Version None)
Quarter: 2004Q4

REPORT INFORMATION
  Report Type: 
  Country: None (occurrence: None)
  Receive Date: 20041110
  Receipt Date: 20041026
  Transmission Date: 20050328
  Serious: Yes (Life-Threatening)
  Sender: FDA-Public Use
  Company Number: A06200400297

PATIENT
  Age: 46 Year
  Sex: Female

DRUGS (3)
  1. PLAQUENIL [Suspect]
     Indication: OSTEOARTHRITIS
     Dosage: 200 MG OD
     Route: 048
     Dates: start: 20040707, end: 20041007
  2. SANDIMMUN NEORAL - (CYCLOSPORINE) - CAPSULE - 100 MG [Suspect]
     Indication: OSTEOARTHRITIS
     Dosage: 100 MG OD
     Route: 048
     Dates: start: 20040707, end: 20041007
  3. MEDROL [Suspect]
     Indication: OSTEOARTHRITIS
     Dosage: 8 MG OD
     Route: 048
     Dates: start: 20040707, end: 20041007

REACTIONS (3)
  - HEPATITIS B [None]
  - HEPATOCELLULAR DAMAGE [None]
  - LIVER TRANSPLANT [None]
